FAERS Safety Report 24647534 (Version 1)
Quarter: 2024Q4

REPORT INFORMATION
  Report Type: Report from Study
  Country: IN (occurrence: IN)
  Receive Date: 20241121
  Receipt Date: 20241121
  Transmission Date: 20250115
  Serious: Yes (Other)
  Sender: NOVARTIS
  Company Number: IN-002147023-NVSC2024IN169594

PATIENT
  Sex: Male

DRUGS (5)
  1. CERTICAN [Suspect]
     Active Substance: EVEROLIMUS
     Indication: Liver transplant
     Dosage: 0.5 MG, BID
     Route: 048
  2. CERTICAN [Suspect]
     Active Substance: EVEROLIMUS
     Dosage: 0.75 MG, BID
     Route: 048
  3. CYCLOSPORINE [Suspect]
     Active Substance: CYCLOSPORINE
     Indication: Liver transplant
     Dosage: 1.2 ML
     Route: 048
  4. CYCLOSPORINE [Suspect]
     Active Substance: CYCLOSPORINE
     Dosage: 0.6 ML
     Route: 065
  5. CYCLOSPORINE [Suspect]
     Active Substance: CYCLOSPORINE
     Dosage: 0.7 ML, BID
     Route: 048

REACTIONS (9)
  - Tuberculous pleurisy [Unknown]
  - Klebsiella urinary tract infection [Unknown]
  - Pyrexia [Recovered/Resolved]
  - Hypertension [Unknown]
  - Urine flow decreased [Unknown]
  - Adenosine deaminase abnormal [Unknown]
  - White blood cell count abnormal [Unknown]
  - Incisional hernia [Unknown]
  - Pyrexia [Unknown]
